FAERS Safety Report 6995885-9 (Version None)
Quarter: 2010Q3

REPORT INFORMATION
  Report Type: 
  Country: None (occurrence: None)
  Receive Date: 20100918
  Receipt Date: 20081103
  Transmission Date: 20110219
  Serious: No
  Sender: FDA-Public Use
  Company Number: US-WYE-H06658408

PATIENT
  Sex: Female

DRUGS (3)
  1. EFFEXOR XR [Suspect]
     Dosage: ^DOSE AS HIGH AS 300 MG DAILY^
     Route: 048
  2. EFFEXOR XR [Suspect]
     Dosage: ^SLOWLY ESCALATED THE DOSE AT A STARTING POINT OF 37.5 MG DAILY^
     Route: 048
  3. EFFEXOR XR [Suspect]
     Dosage: ^LARGER UNKNOWN AMOUNT^
     Route: 048

REACTIONS (1)
  - BURNING SENSATION [None]
